FAERS Safety Report 12403816 (Version 4)
Quarter: 2016Q4

REPORT INFORMATION
  Report Type: Spontaneous
  Country: IT (occurrence: IT)
  Receive Date: 20160525
  Receipt Date: 20161020
  Transmission Date: 20170207
  Serious: Yes (Disabling, Other)
  Sender: FDA-Public Use
  Company Number: IT-ROCHE-1763291

PATIENT
  Age: 74 Year
  Sex: Female

DRUGS (4)
  1. BACTRIM [Concomitant]
     Active Substance: SULFAMETHOXAZOLE\TRIMETHOPRIM
     Indication: PROPHYLAXIS
     Dosage: ^80 MG + 400 MG TABLETS^ 20 TABLETS
     Route: 048
     Dates: start: 20150416, end: 20160127
  2. NIVESTIM [Concomitant]
     Active Substance: FILGRASTIM
     Route: 058
  3. MABTHERA [Suspect]
     Active Substance: RITUXIMAB
     Indication: NON-HODGKIN^S LYMPHOMA
     Dosage: 1 VIAL 500 MG 50 ML
     Route: 042
     Dates: start: 20150422, end: 20150930
  4. LEVACT (ITALY) [Suspect]
     Active Substance: BENDAMUSTINE HYDROCHLORIDE
     Indication: NON-HODGKIN^S LYMPHOMA
     Dosage: ^2.5 MG/ML -5 GLASS VIALS CONTAINING 25 MG
     Route: 042
     Dates: start: 20150415, end: 20150904

REACTIONS (3)
  - Cognitive disorder [Not Recovered/Not Resolved]
  - Progressive multifocal leukoencephalopathy [Not Recovered/Not Resolved]
  - Neutropenia [Recovered/Resolved]

NARRATIVE: CASE EVENT DATE: 20160407
